FAERS Safety Report 14536154 (Version 2)
Quarter: 2018Q2

REPORT INFORMATION
  Report Type: Spontaneous
  Country: IT (occurrence: IT)
  Receive Date: 20180215
  Receipt Date: 20180423
  Transmission Date: 20180711
  Serious: Yes (Other)
  Sender: FDA-Public Use
  Company Number: IT-BRISTOL-MYERS SQUIBB COMPANY-BMS-2018-013591

PATIENT
  Age: 56 Year
  Sex: Male

DRUGS (1)
  1. METFORMIN HYDROCHLORIDE. [Suspect]
     Active Substance: METFORMIN HYDROCHLORIDE
     Indication: TYPE 2 DIABETES MELLITUS
     Dosage: 1500 MG, TID
     Route: 065

REACTIONS (5)
  - Hyperglycaemia [Recovered/Resolved]
  - Diabetic metabolic decompensation [Recovered/Resolved]
  - Fatigue [Unknown]
  - Polyuria [Recovered/Resolved]
  - Dry mouth [Unknown]
